FAERS Safety Report 19360671 (Version 1)
Quarter: 2021Q2

REPORT INFORMATION
  Report Type: Report from Study
  Country: None (occurrence: US)
  Receive Date: 20210602
  Receipt Date: 20210602
  Transmission Date: 20210717
  Serious: No
  Sender: FDA-Public Use
  Company Number: US-MDD US OPERATIONS-MDD202009-001930

PATIENT
  Age: 81 Year
  Sex: Male

DRUGS (12)
  1. MIRALAX [Concomitant]
     Active Substance: POLYETHYLENE GLYCOL 3350
     Dosage: NOT PROVIDED
  2. PROBIOTIC [Concomitant]
     Active Substance: PROBIOTICS NOS
     Dosage: NOT PROVIDED
  3. LOSARTAN. [Concomitant]
     Active Substance: LOSARTAN
     Dosage: NOT PROVIDED
  4. CARBIDOPA LEVODOPA [Concomitant]
     Active Substance: CARBIDOPA\LEVODOPA
     Dosage: NOT PROVIDED
  5. DONEPEZIL. [Concomitant]
     Active Substance: DONEPEZIL
     Dosage: NOT PROVIDED
  6. CARBIDOPA LEVODOPA EXTENDED RELEASE [Concomitant]
     Dosage: NOT PROVIDED
  7. LEVOTHYROXINE. [Concomitant]
     Active Substance: LEVOTHYROXINE
     Dosage: NOT PROVIDED
  8. CARBIDOPA LEVODOPA [Concomitant]
     Active Substance: CARBIDOPA\LEVODOPA
     Dosage: NOT PROVIDED
  9. GABAPENTIN. [Concomitant]
     Active Substance: GABAPENTIN
     Dosage: NOT PROVIDED
  10. APOKYN [Suspect]
     Active Substance: APOMORPHINE HYDROCHLORIDE
     Indication: PARKINSON^S DISEASE
     Dosage: NOT PROVIDED
     Dates: start: 2019, end: 202010
  11. ASPIRIN. [Concomitant]
     Active Substance: ASPIRIN
  12. QUETIAPINE. [Concomitant]
     Active Substance: QUETIAPINE
     Dosage: NOT PROVIDED

REACTIONS (1)
  - Loss of consciousness [Recovered/Resolved]

NARRATIVE: CASE EVENT DATE: 20200903
